FAERS Safety Report 16167416 (Version 3)
Quarter: 2019Q2

REPORT INFORMATION
  Report Type: Report from Study
  Country: CA (occurrence: CA)
  Receive Date: 20190408
  Receipt Date: 20190619
  Transmission Date: 20190711
  Serious: Yes (Other)
  Sender: FDA-Public Use
  Company Number: CA-GLAXOSMITHKLINE-CA2019GSK057996

PATIENT
  Sex: Female

DRUGS (12)
  1. COMBIVENT [Suspect]
     Active Substance: ALBUTEROL SULFATE\IPRATROPIUM BROMIDE
     Indication: ASTHMA
     Dosage: UNK UNK, PRN
     Route: 055
  2. MEPOLIZUMAB [Suspect]
     Active Substance: MEPOLIZUMAB
     Dosage: 100 MG, Z
     Route: 042
  3. SALBUTAMOL [Suspect]
     Active Substance: ALBUTEROL
     Indication: PRODUCT USED FOR UNKNOWN INDICATION
     Dosage: UNK
  4. SINGULAIR [Suspect]
     Active Substance: MONTELUKAST SODIUM
     Indication: ASTHMA
     Dosage: 10 MG, QD
  5. SPIRIVA [Suspect]
     Active Substance: TIOTROPIUM BROMIDE MONOHYDRATE
     Indication: ASTHMA
     Dosage: 2 DF, QD(INHALATION)
     Route: 055
  6. PREDNISONE. [Suspect]
     Active Substance: PREDNISONE
     Indication: LOWER RESPIRATORY TRACT INFECTION
     Dosage: UNK
  7. MEPOLIZUMAB [Suspect]
     Active Substance: MEPOLIZUMAB
     Indication: ASTHMA
     Dosage: 100 MG, Z
  8. ADVAIR DISKUS [Suspect]
     Active Substance: FLUTICASONE PROPIONATE\SALMETEROL XINAFOATE
     Indication: ASTHMA
     Dosage: 1 DF, BID
  9. VENTOLIN [Suspect]
     Active Substance: ALBUTEROL SULFATE
     Indication: ASTHMA
     Dosage: UNK UNK, PRN
  10. MEPOLIZUMAB [Suspect]
     Active Substance: MEPOLIZUMAB
     Dosage: 100 MG, Z
     Route: 042
  11. HYDROXYZINE [Suspect]
     Active Substance: HYDROXYZINE HYDROCHLORIDE
     Indication: PRODUCT USED FOR UNKNOWN INDICATION
     Dosage: UNK UNK, PRN
  12. PREDNISONE. [Suspect]
     Active Substance: PREDNISONE
     Indication: ASTHMA

REACTIONS (28)
  - Emphysema [Unknown]
  - Fall [Unknown]
  - Seizure [Unknown]
  - Malaise [Unknown]
  - Respiratory disorder [Unknown]
  - Urticaria [Unknown]
  - Dyspnoea [Recovering/Resolving]
  - Diarrhoea [Unknown]
  - Hypoxia [Unknown]
  - Respiratory symptom [Recovering/Resolving]
  - Sleep disorder due to a general medical condition [Unknown]
  - Loss of personal independence in daily activities [Recovering/Resolving]
  - Cough [Recovering/Resolving]
  - Sputum discoloured [Unknown]
  - Prolonged expiration [Unknown]
  - Infection [Unknown]
  - Eczema [Unknown]
  - Productive cough [Unknown]
  - Dyspnoea at rest [Recovering/Resolving]
  - Pyrexia [Unknown]
  - Pneumonia [Unknown]
  - Rash pruritic [Unknown]
  - Asthma [Unknown]
  - Dyspnoea exertional [Recovering/Resolving]
  - Wheezing [Recovering/Resolving]
  - Chest discomfort [Unknown]
  - Skin laceration [Unknown]
  - Lower respiratory tract infection [Unknown]
